FAERS Safety Report 8500253-4 (Version None)
Quarter: 2012Q3

REPORT INFORMATION
  Report Type: 
  Country: None (occurrence: None)
  Receive Date: 20120710
  Receipt Date: 20120705
  Transmission Date: 20120928
  Serious: Yes (Other)
  Sender: FDA-Public Use
  Company Number: PHHY2012TR057688

PATIENT
  Age: 38 Year
  Sex: Female

DRUGS (3)
  1. PAROXETINE [Suspect]
  2. CLONAZEPAM [Suspect]
     Dosage: 0.625 MG, QHS
  3. OLANZAPINE [Suspect]
     Dosage: 2.5 MG, QHS

REACTIONS (5)
  - APHASIA [None]
  - SOMNOLENCE [None]
  - LETHARGY [None]
  - SEDATION [None]
  - ATAXIA [None]
